FAERS Safety Report 6795795-6 (Version None)
Quarter: 2010Q2

REPORT INFORMATION
  Report Type: 
  Country: None (occurrence: None)
  Receive Date: 20100625
  Receipt Date: 20100617
  Transmission Date: 20101027
  Serious: Yes (Other)
  Sender: FDA-Public Use
  Company Number: GXKR2010GB06434

PATIENT
  Age: 66 Year
  Sex: Female
  Weight: 81 kg

DRUGS (13)
  1. BENDROFLUMETHIAZIDE (NGX) [Suspect]
     Indication: HYPERTENSION
     Dosage: 2.5 MG, QD
     Route: 048
     Dates: start: 20050101, end: 20100528
  2. DOCETAXEL (NGX) [Suspect]
     Indication: BREAST CANCER
     Dosage: UNK
     Route: 042
     Dates: start: 20100415
  3. OMEPRAZOLE [Suspect]
     Indication: REFLUX OESOPHAGITIS
     Dosage: 20 MG, QD
     Route: 048
     Dates: start: 20050101, end: 20100528
  4. ACETYLSALICYLIC ACID [Concomitant]
  5. BETAHISTINE DIHYDROCHLORIDE [Concomitant]
  6. CANDESARTAN CILEXETIL [Concomitant]
  7. CYCLOPHOSPHAMIDE [Concomitant]
     Indication: BREAST CANCER
     Dosage: UNK
     Dates: start: 20100201
  8. DEXAMETHASONE [Concomitant]
  9. DOMPERIDONE [Concomitant]
  10. EPIRUBICIN [Concomitant]
     Indication: BREAST CANCER
     Dosage: UNK
     Dates: start: 20100201
  11. GRANISETRON [Concomitant]
  12. METFORMIN [Concomitant]
  13. SIMVASTATIN [Concomitant]

REACTIONS (4)
  - DIARRHOEA [None]
  - HYPOCALCAEMIA [None]
  - HYPOMAGNESAEMIA [None]
  - TETANY [None]
